FAERS Safety Report 8339114-2 (Version None)
Quarter: 2012Q2

REPORT INFORMATION
  Report Type: 
  Country: None (occurrence: None)
  Receive Date: 20120502
  Receipt Date: 20120418
  Transmission Date: 20120825
  Serious: Yes (Other)
  Sender: FDA-Public Use
  Company Number: 2012P1015236

PATIENT
  Age: 71 Year
  Sex: Male
  Weight: 168 kg

DRUGS (11)
  1. OXYCODONE HCL [Concomitant]
  2. TRIAMTERENE AND HYDROCHLOROTHIAZIDE [Concomitant]
  3. EYE DROPS [Concomitant]
  4. MORPHINE [Concomitant]
  5. TARCEVA [Concomitant]
  6. ZOLOFT [Concomitant]
  7. COMPAZINE [Concomitant]
  8. DOXYCYCLINE [Concomitant]
  9. LORAZEPAM [Concomitant]
  10. FENTANYL-50 [Suspect]
     Indication: CANCER PAIN
     Dosage: 1 PATCH;Q72H;TDER
     Route: 062
     Dates: start: 20120201, end: 20120301
  11. OXYCONTIN [Concomitant]

REACTIONS (4)
  - DIZZINESS [None]
  - APPLICATION SITE VESICLES [None]
  - APPLICATION SITE RASH [None]
  - FATIGUE [None]
